FAERS Safety Report 24822789 (Version 1)
Quarter: 2025Q1

REPORT INFORMATION
  Report Type: Spontaneous
  Country: US (occurrence: US)
  Receive Date: 20250109
  Receipt Date: 20250109
  Transmission Date: 20250409
  Serious: No
  Sender: AUROBINDO
  Company Number: US-AUROBINDO-AUR-APL-2024-017134

PATIENT

DRUGS (1)
  1. CLOZAPINE [Suspect]
     Active Substance: CLOZAPINE
     Indication: Product used for unknown indication
     Route: 065

REACTIONS (8)
  - Withdrawal syndrome [Unknown]
  - Abnormal dreams [Unknown]
  - Hypervigilance [Unknown]
  - Insomnia [Unknown]
  - Drug ineffective [Unknown]
  - Product use issue [Unknown]
  - Expired product administered [Unknown]
  - Product formulation issue [Unknown]
